FAERS Safety Report 7019596-9 (Version None)
Quarter: 2010Q3

REPORT INFORMATION
  Report Type: 
  Country: None (occurrence: None)
  Receive Date: 20100928
  Receipt Date: 20100928
  Transmission Date: 20110219
  Serious: Yes (Hospitalization)
  Sender: FDA-Public Use
  Company Number: None

PATIENT
  Sex: Female
  Weight: 84 kg

DRUGS (2)
  1. GABAPENTIN [Suspect]
     Indication: NEURALGIA
     Dosage: MG BID PO
     Route: 048
     Dates: start: 20100901, end: 20100915
  2. REMERON 15 [Concomitant]
     Indication: DEPRESSION
     Dosage: MG HS PO
     Route: 048
     Dates: start: 20100901, end: 20100915

REACTIONS (8)
  - ANGIOEDEMA [None]
  - ATELECTASIS [None]
  - BLOOD PRESSURE SYSTOLIC INCREASED [None]
  - DYSPNOEA EXERTIONAL [None]
  - FACE OEDEMA [None]
  - OEDEMA PERIPHERAL [None]
  - SWELLING FACE [None]
  - THROAT TIGHTNESS [None]
